FAERS Safety Report 7114054-5 (Version None)
Quarter: 2010Q4

REPORT INFORMATION
  Report Type: 
  Country: None (occurrence: None)
  Receive Date: 20101119
  Receipt Date: 20101112
  Transmission Date: 20110411
  Serious: Yes (Hospitalization)
  Sender: FDA-Public Use
  Company Number: DE-ASTRAZENECA-2010SE54562

PATIENT
  Age: 27714 Day
  Sex: Male

DRUGS (12)
  1. IRESSA [Suspect]
     Indication: NON-SMALL CELL LUNG CANCER
     Route: 048
     Dates: start: 20101022, end: 20101112
  2. TILIDIN [Suspect]
     Indication: PAIN
     Dosage: AS REQUIRED
     Route: 048
  3. CLEXANE [Concomitant]
     Indication: ATRIAL FIBRILLATION
     Route: 058
  4. VERAPAMIL [Concomitant]
     Indication: ATRIAL FIBRILLATION
     Route: 048
  5. NOVAMIN [Concomitant]
     Indication: PAIN PROPHYLAXIS
     Route: 048
     Dates: start: 20101105
  6. PANTOPRAZOLE SODIUM [Concomitant]
     Indication: PROPHYLAXIS
     Route: 048
  7. TORASEMID [Concomitant]
     Indication: HYPERTENSION
     Route: 048
  8. RAMIPRIL [Concomitant]
     Indication: HYPERTENSION
     Route: 048
  9. INUVAIR [Concomitant]
     Indication: CHRONIC OBSTRUCTIVE PULMONARY DISEASE
     Dosage: 100/5 UG BID, TOTAL DAILY DOSE: 200/10 UG
     Route: 055
  10. INUVAIR [Concomitant]
     Indication: EMPHYSEMA
     Dosage: 100/5 UG BID, TOTAL DAILY DOSE: 200/10 UG
     Route: 055
  11. SPIRIVA [Concomitant]
     Indication: CHRONIC OBSTRUCTIVE PULMONARY DISEASE
     Route: 055
  12. SPIRIVA [Concomitant]
     Indication: EMPHYSEMA
     Route: 055

REACTIONS (3)
  - ABDOMINAL PAIN [None]
  - CONSTIPATION [None]
  - SUBILEUS [None]
